FAERS Safety Report 12618708 (Version 6)
Quarter: 2017Q1

REPORT INFORMATION
  Report Type: Report from Study
  Country: JP (occurrence: JP)
  Receive Date: 20160803
  Receipt Date: 20170306
  Transmission Date: 20170428
  Serious: Yes (Hospitalization)
  Sender: FDA-Public Use
  Company Number: JP-JNJFOC-20160727594

PATIENT
  Age: 75 Year
  Sex: Male
  Weight: 62 kg

DRUGS (2)
  1. PREDONINE [Suspect]
     Active Substance: PREDNISOLONE
     Indication: HORMONE-REFRACTORY PROSTATE CANCER
     Route: 048
     Dates: start: 20160113
  2. ZYTIGA [Suspect]
     Active Substance: ABIRATERONE ACETATE
     Indication: HORMONE-REFRACTORY PROSTATE CANCER
     Route: 048
     Dates: start: 20160113

REACTIONS (3)
  - Pyelonephritis [Recovered/Resolved]
  - Hyperglycaemia [Not Recovered/Not Resolved]
  - Liver disorder [Recovering/Resolving]

NARRATIVE: CASE EVENT DATE: 20160224
